FAERS Safety Report 7964075-5 (Version None)
Quarter: 2011Q4

REPORT INFORMATION
  Report Type: 
  Country: None (occurrence: None)
  Receive Date: 20111208
  Receipt Date: 20111130
  Transmission Date: 20120403
  Serious: Yes (Hospitalization)
  Sender: FDA-Public Use
  Company Number: FR-TEVA-312131ISR

PATIENT
  Age: 35 Year
  Sex: Female

DRUGS (4)
  1. FLURBIPROFEN [Suspect]
     Indication: ABDOMINAL PAIN
     Route: 048
     Dates: start: 20110725, end: 20110725
  2. KETOPROFEN [Suspect]
     Indication: PAIN
     Route: 030
     Dates: start: 20110726, end: 20110726
  3. MORPHINE [Suspect]
     Indication: PAIN
     Route: 042
     Dates: start: 20110726, end: 20110727
  4. MORPHINE [Suspect]
     Route: 042
     Dates: start: 20110730, end: 20110801

REACTIONS (1)
  - PANCREATITIS [None]
